FAERS Safety Report 23346550 (Version 1)
Quarter: 2023Q4

REPORT INFORMATION
  Report Type: Spontaneous
  Country: US (occurrence: None)
  Receive Date: 20231227
  Receipt Date: 20231227
  Transmission Date: 20240109
  Serious: Yes (Other)
  Sender: FDA-Public Use
  Company Number: None

PATIENT
  Age: 71 Year
  Sex: Male

DRUGS (1)
  1. PIRFENIDONE [Suspect]
     Active Substance: PIRFENIDONE
     Indication: Idiopathic pulmonary fibrosis
     Dosage: FREQUENCY : TWICE A DAY;?
     Route: 048
     Dates: start: 20231020, end: 20231130

REACTIONS (5)
  - Drug intolerance [None]
  - Weight decreased [None]
  - Fatigue [None]
  - Asthenia [None]
  - Therapy cessation [None]

NARRATIVE: CASE EVENT DATE: 20231227
